FAERS Safety Report 4611320-X (Version None)
Quarter: 2005Q1

REPORT INFORMATION
  Report Type: 
  Country: None (occurrence: None)
  Receive Date: 20050317
  Receipt Date: 20050314
  Transmission Date: 20050727
  Serious: Yes (Other)
  Sender: FDA-Public Use
  Company Number: PHNU2005DE01350

PATIENT

DRUGS (2)
  1. PROVAS [Suspect]
     Route: 048
  2. ACETYLSALICYLIC ACID SRT [Concomitant]

REACTIONS (1)
  - EPISTAXIS [None]
